FAERS Safety Report 9479628 (Version 2)
Quarter: 2013Q3

REPORT INFORMATION
  Report Type: Spontaneous
  Country: US (occurrence: US)
  Receive Date: 20130827
  Receipt Date: 20130925
  Transmission Date: 20140515
  Serious: Yes (Other)
  Sender: FDA-Public Use
  Company Number: PHEH2013US018039

PATIENT
  Sex: Male

DRUGS (1)
  1. DIOVAN [Suspect]
     Dosage: 40 MG, UNK

REACTIONS (3)
  - Systemic lupus erythematosus [Unknown]
  - Anxiety [Unknown]
  - Hypertension [Unknown]
